FAERS Safety Report 4960234-4 (Version None)
Quarter: 2006Q1

REPORT INFORMATION
  Report Type: 
  Country: None (occurrence: None)
  Receive Date: 20060328
  Receipt Date: 20060315
  Transmission Date: 20060701
  Serious: Yes (Other)
  Sender: FDA-Public Use
  Company Number: 2006037083

PATIENT
  Age: 27 Year
  Sex: Female
  Weight: 77.5651 kg

DRUGS (2)
  1. DEPO-PROVERA [Suspect]
     Indication: CONTRACEPTION
     Dosage: SEE IMAGE
     Route: 030
     Dates: start: 20060206, end: 20060206
  2. DEPO-PROVERA [Suspect]
     Indication: ENDOMETRIOSIS
     Dosage: SEE IMAGE
     Route: 030
     Dates: start: 20060206, end: 20060206

REACTIONS (12)
  - CHANGE OF BOWEL HABIT [None]
  - CHLAMYDIAL INFECTION [None]
  - DRUG EXPOSURE BEFORE PREGNANCY [None]
  - ENDOMETRIOSIS [None]
  - INSOMNIA [None]
  - OSTEOPENIA [None]
  - PAPILLOMA VIRAL INFECTION [None]
  - PELVIC PAIN [None]
  - PREGNANCY [None]
  - SINUS DISORDER [None]
  - SMEAR CERVIX ABNORMAL [None]
  - WEIGHT INCREASED [None]
